FAERS Safety Report 19641746 (Version 7)
Quarter: 2022Q2

REPORT INFORMATION
  Report Type: Report from Study
  Country: KR (occurrence: KR)
  Receive Date: 20210730
  Receipt Date: 20220527
  Transmission Date: 20220721
  Serious: Yes (Hospitalization, Other)
  Sender: FDA-Public Use
  Company Number: KR-TAKEDA-2021TUS046603

PATIENT
  Age: 79 Year
  Sex: Female

DRUGS (10)
  1. BRIGATINIB [Suspect]
     Active Substance: BRIGATINIB
     Indication: Non-small cell lung cancer
     Dosage: 90 MILLIGRAM, QD
     Route: 048
     Dates: start: 20210531, end: 20210607
  2. BRIGATINIB [Suspect]
     Active Substance: BRIGATINIB
     Dosage: 30 MILLIGRAM, QD
     Route: 048
     Dates: start: 20210617, end: 20210630
  3. BRIGATINIB [Suspect]
     Active Substance: BRIGATINIB
     Dosage: 60 MILLIGRAM, QD
     Route: 048
     Dates: start: 20210701, end: 20210706
  4. BRIGATINIB [Suspect]
     Active Substance: BRIGATINIB
     Dosage: 90 MILLIGRAM, QD
     Route: 048
     Dates: start: 20210707, end: 20210721
  5. SYNATURA [Concomitant]
     Indication: Prophylaxis
     Dosage: 45 MILLIGRAM, TID
     Route: 048
     Dates: start: 20210222, end: 20210622
  6. DAEIL LOPERAMIDE [Concomitant]
     Indication: Prophylaxis against diarrhoea
     Dosage: UNK, TID
     Route: 048
     Dates: start: 20190524, end: 20210606
  7. MEGESTROL ACETATE [Concomitant]
     Active Substance: MEGESTROL ACETATE
     Indication: Prophylaxis
     Dosage: 650 MILLIGRAM, QD
     Route: 048
     Dates: start: 20210524, end: 20210628
  8. HARMONILAN [Concomitant]
     Indication: Prophylaxis
     Dosage: 200 MILLILITER, QD
     Route: 048
     Dates: start: 20210524, end: 20210706
  9. METHYLPREDNISOLONE [Concomitant]
     Active Substance: METHYLPREDNISOLONE
     Indication: Prophylaxis
     Dosage: 8 MILLIGRAM, QD
     Route: 048
     Dates: start: 20210524, end: 20210614
  10. ALPRAZOLAM [Concomitant]
     Active Substance: ALPRAZOLAM
     Indication: Prophylaxis
     Dosage: 0.50 MILLIGRAM, QD
     Route: 048
     Dates: start: 20210524, end: 20210706

REACTIONS (3)
  - Lung disorder [Recovered/Resolved]
  - Interstitial lung disease [Recovered/Resolved]
  - Dyspnoea [Recovered/Resolved]

NARRATIVE: CASE EVENT DATE: 20210607
